FAERS Safety Report 24369090 (Version 2)
Quarter: 2024Q4

REPORT INFORMATION
  Report Type: Spontaneous
  Country: IT (occurrence: IT)
  Receive Date: 20240927
  Receipt Date: 20241010
  Transmission Date: 20250115
  Serious: Yes (Hospitalization, Other)
  Sender: NOVO NORDISK
  Company Number: IT-NOVOPROD-1286419

PATIENT
  Age: 49 Year
  Sex: Male

DRUGS (1)
  1. ESPEROCT [Suspect]
     Active Substance: ANTIHEMOPHILIC FACTOR, HUMAN RECOMBINANT
     Indication: Factor VIII deficiency
     Dosage: 50 IU/KG
     Dates: start: 202306

REACTIONS (5)
  - Cerebral haemorrhage [Recovered/Resolved]
  - Hypertensive crisis [Unknown]
  - Anti factor VIII antibody positive [Unknown]
  - Coagulation factor VIII level decreased [Unknown]
  - Drug ineffective [Recovered/Resolved]

NARRATIVE: CASE EVENT DATE: 20240201
